FAERS Safety Report 11878834 (Version 7)
Quarter: 2016Q1

REPORT INFORMATION
  Report Type: Spontaneous
  Country: JP (occurrence: JP)
  Receive Date: 20151230
  Receipt Date: 20160324
  Transmission Date: 20160526
  Serious: Yes (Hospitalization, Other)
  Sender: FDA-Public Use
  Company Number: JP-PFIZER INC-2015472276

PATIENT
  Age: 78 Year
  Sex: Female

DRUGS (29)
  1. LYRICA [Suspect]
     Active Substance: PREGABALIN
     Dosage: 75 MG AFTER BREAKFAST AND 225 MG AFTER SUPPER
     Route: 048
     Dates: start: 20150807, end: 20150910
  2. MICARDIS [Concomitant]
     Active Substance: TELMISARTAN
  3. NOVAMIN [Concomitant]
     Active Substance: PROCHLORPERAZINE MALEATE
     Dosage: 5 MG, 2X/DAY
     Route: 048
     Dates: start: 20150403, end: 20150507
  4. NOVAMIN [Concomitant]
     Active Substance: PROCHLORPERAZINE MALEATE
     Dosage: 5 MG, 3X/DAY
     Route: 048
     Dates: start: 20150710, end: 20150806
  5. NOVAMIN [Concomitant]
     Active Substance: PROCHLORPERAZINE MALEATE
     Dosage: 5 MG, 2X/DAY
     Route: 048
     Dates: start: 20150612, end: 20150709
  6. LYRICA [Suspect]
     Active Substance: PREGABALIN
     Dosage: 125 MG, 2X/DAY
     Route: 048
     Dates: start: 20140423, end: 20140506
  7. OPALMON [Concomitant]
     Active Substance: LIMAPROST
     Dosage: 5 UG, 2X/DAY
     Route: 048
     Dates: start: 20150508, end: 20150611
  8. LYRICA [Suspect]
     Active Substance: PREGABALIN
     Dosage: 150 MG AFTER BREAKFAST AND 225 MG AFTER SUPPER
     Route: 048
     Dates: start: 20141017, end: 20150806
  9. LYRICA [Suspect]
     Active Substance: PREGABALIN
     Dosage: 75 MG, 2X/DAY
     Route: 048
     Dates: start: 20151010
  10. TRAMAL [Suspect]
     Active Substance: TRAMADOL
     Dosage: 50 MG, 3X/DAY
     Route: 048
     Dates: start: 20150710, end: 20150806
  11. TRAMCET [Concomitant]
     Active Substance: ACETAMINOPHEN\TRAMADOL
     Dosage: 1 DF, AS NEEDED
     Route: 048
     Dates: start: 20150220
  12. TRAMCET [Concomitant]
     Active Substance: ACETAMINOPHEN\TRAMADOL
     Dosage: 1 DF, 2X/DAY
     Route: 048
     Dates: start: 20150403, end: 20150527
  13. LYRICA [Suspect]
     Active Substance: PREGABALIN
     Dosage: 100 MG, 2X/DAY
     Route: 048
     Dates: start: 20140409, end: 20140422
  14. LYRICA [Suspect]
     Active Substance: PREGABALIN
     Dosage: 175 MG, 2X/DAY
     Route: 048
     Dates: start: 20140521, end: 20141016
  15. AMLODIPINE BESILATE [Concomitant]
     Active Substance: AMLODIPINE BESYLATE
  16. RIZE [Concomitant]
     Active Substance: CLOTIAZEPAM
  17. LENDORMIN [Concomitant]
     Active Substance: BROTIZOLAM
  18. BOFUTSUSHOSAN [Concomitant]
     Active Substance: HERBALS
     Dosage: UNK, 2X/DAY
     Dates: start: 20140702, end: 20140729
  19. NOVAMIN [Concomitant]
     Active Substance: PROCHLORPERAZINE MALEATE
     Dosage: 5 MG, 4X/DAY
     Route: 048
     Dates: start: 20150807
  20. TRAMAL [Suspect]
     Active Substance: TRAMADOL
     Dosage: 50 MG, 4X/DAY
     Route: 048
     Dates: start: 20150807, end: 20151010
  21. NOVAMIN [Concomitant]
     Active Substance: PROCHLORPERAZINE MALEATE
     Dosage: 5 MG, AS NEEDED
     Route: 048
     Dates: start: 20150220
  22. LYRICA [Suspect]
     Active Substance: PREGABALIN
     Dosage: 150 MG, 2X/DAY
     Route: 048
     Dates: start: 20140507, end: 20140520
  23. TRAMAL [Suspect]
     Active Substance: TRAMADOL
     Indication: NEURALGIA
     Dosage: 50 MG, 2X/DAY
     Route: 048
     Dates: start: 20150612, end: 20150709
  24. LEXAPRO [Concomitant]
     Active Substance: ESCITALOPRAM OXALATE
  25. BOFUTSUSHOSAN [Concomitant]
     Active Substance: HERBALS
     Dosage: UNK, 3X/DAY
     Dates: start: 20140730
  26. LYRICA [Suspect]
     Active Substance: PREGABALIN
     Dosage: 75 MG AFTER BREAKFAST AND 150 MG AFTER SUPPER
     Route: 048
     Dates: start: 20150911, end: 20151009
  27. CRESTOR [Concomitant]
     Active Substance: ROSUVASTATIN CALCIUM
  28. EPADEL [Concomitant]
     Active Substance: ICOSAPENT
     Dosage: UNK
  29. YOKUKANSAN [Concomitant]
     Active Substance: HERBALS
     Dosage: 2.5 MG, 1X/DAY
     Dates: start: 20141128

REACTIONS (7)
  - Dementia [Unknown]
  - Cognitive disorder [Recovered/Resolved]
  - Fall [Recovered/Resolved]
  - Parkinsonian gait [Recovered/Resolved]
  - Dizziness [Recovered/Resolved]
  - Spinal fracture [Not Recovered/Not Resolved]
  - Amnesia [Unknown]

NARRATIVE: CASE EVENT DATE: 20150620
